FAERS Safety Report 17124079 (Version 2)
Quarter: 2020Q1

REPORT INFORMATION
  Report Type: Spontaneous
  Country: DE (occurrence: DE)
  Receive Date: 20191206
  Receipt Date: 20200109
  Transmission Date: 20200409
  Serious: Yes (Hospitalization)
  Sender: FDA-Public Use
  Company Number: DE-PFIZER INC-2019527651

PATIENT
  Sex: Male

DRUGS (6)
  1. FLUCONAZOLE. [Suspect]
     Active Substance: FLUCONAZOLE
     Dosage: UNK
  2. DULOXETINE. [Concomitant]
     Active Substance: DULOXETINE
     Dosage: UNK
  3. EREMFAT [RIFAMPICIN] [Suspect]
     Active Substance: RIFAMPIN
     Indication: LYME DISEASE
     Dosage: UNK
     Route: 048
  4. ZOPICLONE [Concomitant]
     Active Substance: ZOPICLONE
     Dosage: UNK
  5. AZITHROMYCIN ANHYDROUS. [Suspect]
     Active Substance: AZITHROMYCIN ANHYDROUS
     Indication: LYME DISEASE
     Dosage: UNK
  6. CEFOTAXIME [Suspect]
     Active Substance: CEFOTAXIME SODIUM
     Indication: LYME DISEASE
     Dosage: UNK

REACTIONS (3)
  - Product use in unapproved indication [Unknown]
  - B-lymphocyte count decreased [Unknown]
  - Off label use [Unknown]

NARRATIVE: CASE EVENT DATE: 201911
